FAERS Safety Report 4298704-7 (Version None)
Quarter: 2004Q1

REPORT INFORMATION
  Report Type: 
  Country: None (occurrence: None)
  Receive Date: 20040126
  Receipt Date: 20031020
  Transmission Date: 20041129
  Serious: No
  Sender: FDA-Public Use
  Company Number: USA031050489

PATIENT
  Sex: Male

DRUGS (2)
  1. STRATTERA [Suspect]
     Dosage: 60 MG/DAY
  2. GEODON [Concomitant]

REACTIONS (2)
  - DRUG INEFFECTIVE [None]
  - URINARY HESITATION [None]
